FAERS Safety Report 15412783 (Version 2)
Quarter: 2018Q4

REPORT INFORMATION
  Report Type: Report from Study
  Country: US (occurrence: US)
  Receive Date: 20180921
  Receipt Date: 20181003
  Transmission Date: 20190204
  Serious: Yes (Other)
  Sender: FDA-Public Use
  Company Number: US-FERRINGPH-2018FE05118

PATIENT
  Age: 14 Year
  Sex: Male
  Weight: 49 kg

DRUGS (2)
  1. SOMATROPIN. [Suspect]
     Active Substance: SOMATROPIN
     Indication: GROWTH RETARDATION
  2. SOMATROPIN. [Suspect]
     Active Substance: SOMATROPIN
     Indication: GROWTH HORMONE DEFICIENCY
     Dosage: UNK
     Route: 058
     Dates: start: 20180121, end: 20180913

REACTIONS (2)
  - Bone development abnormal [Unknown]
  - Malocclusion [Not Recovered/Not Resolved]

NARRATIVE: CASE EVENT DATE: 2018
